FAERS Safety Report 13930907 (Version 2)
Quarter: 2017Q4

REPORT INFORMATION
  Report Type: Spontaneous
  Country: JP (occurrence: JP)
  Receive Date: 20170902
  Receipt Date: 20171117
  Transmission Date: 20180320
  Serious: Yes (Other)
  Sender: FDA-Public Use
  Company Number: JP-AMGEN-JPNSP2017133609

PATIENT
  Sex: Female

DRUGS (1)
  1. G-LASTA [Suspect]
     Active Substance: PEGFILGRASTIM
     Indication: PRODUCT USED FOR UNKNOWN INDICATION
     Dosage: UNK
     Route: 065

REACTIONS (16)
  - Neutropenia [Unknown]
  - Malaise [Unknown]
  - Nausea [Unknown]
  - Thrombocytopenia [Unknown]
  - Vomiting [Unknown]
  - Ejection fraction decreased [Unknown]
  - Anaemia [Unknown]
  - Bone pain [Unknown]
  - Infection [Unknown]
  - Palmar-plantar erythrodysaesthesia syndrome [Unknown]
  - Febrile neutropenia [Unknown]
  - Diarrhoea [Unknown]
  - Transaminases increased [Unknown]
  - Pneumocystis jirovecii pneumonia [Unknown]
  - Lymphopenia [Unknown]
  - Constipation [Unknown]
